FAERS Safety Report 9030390 (Version 5)
Quarter: 2014Q4

REPORT INFORMATION
  Report Type: Report from Study
  Country: CA (occurrence: CA)
  Receive Date: 20130122
  Receipt Date: 20141231
  Transmission Date: 20150529
  Serious: Yes (Hospitalization, Other)
  Sender: FDA-Public Use
  Company Number: CA-ROCHE-1167835

PATIENT
  Age: 51 Year
  Sex: Female

DRUGS (5)
  1. OMALIZUMAB [Suspect]
     Active Substance: OMALIZUMAB
     Route: 058
     Dates: start: 20111020
  2. OMALIZUMAB [Suspect]
     Active Substance: OMALIZUMAB
     Route: 058
     Dates: start: 20090111
  3. OMALIZUMAB [Suspect]
     Active Substance: OMALIZUMAB
     Route: 058
     Dates: start: 20140218
  4. OMALIZUMAB [Suspect]
     Active Substance: OMALIZUMAB
     Indication: ASTHMA
     Route: 058
     Dates: start: 20060104
  5. OMALIZUMAB [Suspect]
     Active Substance: OMALIZUMAB
     Route: 058
     Dates: start: 20141125

REACTIONS (25)
  - Productive cough [Unknown]
  - Sputum discoloured [Unknown]
  - Fungal infection [Unknown]
  - Pharyngeal oedema [Unknown]
  - Headache [Unknown]
  - Gait disturbance [Unknown]
  - Bone pain [Unknown]
  - Dysphagia [Unknown]
  - Swollen tongue [Unknown]
  - Cough [Unknown]
  - Increased upper airway secretion [Unknown]
  - Arthralgia [Unknown]
  - Vision blurred [Unknown]
  - Pain [Recovered/Resolved]
  - Bronchitis [Recovering/Resolving]
  - Pyrexia [Unknown]
  - Myalgia [Unknown]
  - Nasopharyngitis [Unknown]
  - Heart rate increased [Unknown]
  - Pain in extremity [Unknown]
  - Dyspnoea [Unknown]
  - Oropharyngeal pain [Unknown]
  - Migraine [Recovered/Resolved]
  - Wheezing [Unknown]
  - Fatigue [Recovered/Resolved]

NARRATIVE: CASE EVENT DATE: 20100920
